FAERS Safety Report 7968390-0 (Version None)
Quarter: 2011Q4

REPORT INFORMATION
  Report Type: 
  Country: None (occurrence: None)
  Receive Date: 20111209
  Receipt Date: 20111201
  Transmission Date: 20120403
  Serious: Yes (Hospitalization, Other)
  Sender: FDA-Public Use
  Company Number: US-ABBOTT-11P-163-0866809-00

PATIENT
  Sex: Male

DRUGS (4)
  1. HUMIRA [Suspect]
     Route: 058
     Dates: start: 20110801, end: 20110801
  2. HUMIRA [Suspect]
     Route: 058
     Dates: start: 20111016, end: 20111122
  3. HUMIRA [Suspect]
     Indication: CROHN'S DISEASE
     Route: 058
     Dates: start: 20110801, end: 20110801
  4. HUMIRA [Suspect]
     Route: 058
     Dates: start: 20110822, end: 20110926

REACTIONS (7)
  - COLON INJURY [None]
  - CROHN'S DISEASE [None]
  - PHARYNGITIS STREPTOCOCCAL [None]
  - CHILLS [None]
  - VESICAL FISTULA [None]
  - CYSTITIS [None]
  - PYREXIA [None]
